FAERS Safety Report 8829485 (Version 3)
Quarter: 2013Q1

REPORT INFORMATION
  Report Type: Spontaneous
  Country: US (occurrence: US)
  Receive Date: 20121008
  Receipt Date: 20130125
  Transmission Date: 20140127
  Serious: No
  Sender: FDA-Public Use
  Company Number: US-009507513-1210USA003024

PATIENT
  Age: 10 Year
  Sex: Male

DRUGS (2)
  1. MIRALAX [Suspect]
     Indication: ENCOPRESIS
     Dosage: UNK UNK, QD
     Route: 048
     Dates: start: 2008
  2. MIRALAX [Suspect]
     Indication: MEDICAL OBSERVATION

REACTIONS (5)
  - Encopresis [Unknown]
  - Incorrect drug administration duration [Unknown]
  - Drug administered to patient of inappropriate age [Unknown]
  - Off label use [Unknown]
  - Overdose [Unknown]
